FAERS Safety Report 10079931 (Version 2)
Quarter: 2014Q2

REPORT INFORMATION
  Report Type: Spontaneous
  Country: IT (occurrence: IT)
  Receive Date: 20140415
  Receipt Date: 20140415
  Transmission Date: 20141212
  Serious: Yes (Other)
  Sender: FDA-Public Use
  Company Number: IT-WATSON-2013-09158

PATIENT
  Age: 19 Year
  Sex: Female

DRUGS (2)
  1. SERTRALINE HYDROCHLORIDE (UNKNOWN) [Suspect]
     Indication: DEPRESSION
     Dosage: 100 MG, SINGLE
     Route: 048
     Dates: start: 20130426, end: 20130426
  2. DELORAZEPAM [Suspect]
     Indication: DEPRESSION
     Dosage: 12 MG, SINGLE
     Route: 048
     Dates: start: 20130426, end: 20130426

REACTIONS (2)
  - Personality disorder [Recovering/Resolving]
  - Suicide attempt [Recovering/Resolving]
